FAERS Safety Report 5838037-8 (Version None)
Quarter: 2008Q3

REPORT INFORMATION
  Report Type: 
  Country: None (occurrence: None)
  Receive Date: 20080808
  Receipt Date: 20080314
  Transmission Date: 20090109
  Serious: No
  Sender: FDA-Public Use
  Company Number: A0716856A

PATIENT
  Age: 58 Year
  Sex: Male
  Weight: 72.7 kg

DRUGS (3)
  1. ANDRODERM [Suspect]
     Dosage: 5MG PER DAY
     Route: 062
     Dates: start: 20070901
  2. ANDRODERM [Suspect]
     Dosage: 2.5MG PER DAY
     Route: 062
     Dates: start: 20080229
  3. PAXIL [Suspect]
     Indication: DEPRESSION
     Dosage: 30MG PER DAY
     Route: 048
     Dates: start: 20070101

REACTIONS (4)
  - ANGER [None]
  - ASTHENIA [None]
  - DRUG INEFFECTIVE [None]
  - LOSS OF LIBIDO [None]
